FAERS Safety Report 11872210 (Version 1)
Quarter: 2015Q4

REPORT INFORMATION
  Report Type: Spontaneous
  Country: GB (occurrence: GB)
  Receive Date: 20151228
  Receipt Date: 20151228
  Transmission Date: 20160305
  Serious: Yes (Other)
  Sender: FDA-Public Use
  Company Number: GB-PFIZER INC-2015464387

PATIENT
  Age: 48 Year
  Sex: Female
  Weight: 106 kg

DRUGS (4)
  1. DOXYCYCLINE MONOHYDRATE [Suspect]
     Active Substance: DOXYCYCLINE
     Dosage: 1 DF, UNK
     Route: 048
     Dates: start: 20151214
  2. VENLAFAXINE [Concomitant]
     Active Substance: VENLAFAXINE HYDROCHLORIDE
     Indication: DEPRESSION
     Dosage: UNK
  3. ASPIRIN /00002701/ [Concomitant]
     Active Substance: ASPIRIN
     Dosage: 1 DF, 1X/DAY
     Dates: start: 20150728
  4. VIEPAX [Concomitant]
     Dosage: 1 DF, 1X/DAY
     Dates: start: 20150728

REACTIONS (1)
  - Peripheral swelling [Recovered/Resolved]

NARRATIVE: CASE EVENT DATE: 20151214
